FAERS Safety Report 8954544 (Version 8)
Quarter: 2013Q4

REPORT INFORMATION
  Report Type: Spontaneous
  Country: US (occurrence: US)
  Receive Date: 20121209
  Receipt Date: 20131101
  Transmission Date: 20140711
  Serious: No
  Sender: FDA-Public Use
  Company Number: US-009507513-1212USA002582

PATIENT
  Age: 66 Year
  Sex: Male
  Weight: 123.36 kg

DRUGS (12)
  1. PEG-INTRON [Suspect]
     Indication: HEPATITIS C
     Dosage: 1.5 MICROGRAM PER KILOGRAM, QW (REDIPEN)
     Dates: start: 20121202, end: 20131027
  2. REBETOL [Suspect]
     Indication: HEPATITIS C
     Dosage: 800 MG, QAM
     Route: 048
     Dates: start: 20121203, end: 20131027
  3. REBETOL [Suspect]
     Dosage: 600 MG, QPM
     Route: 048
     Dates: start: 20121203, end: 20131027
  4. VICTRELIS [Suspect]
     Indication: HEPATITIS C
     Dosage: UNK
     Route: 048
     Dates: start: 20121231, end: 2013
  5. VICTRELIS [Suspect]
     Dosage: 800 MG, TID
     Route: 048
     Dates: start: 20130210, end: 20131027
  6. LANTUS [Concomitant]
     Indication: PRODUCT USED FOR UNKNOWN INDICATION
  7. OXYCODONE [Concomitant]
     Indication: BACK PAIN
  8. FERROUS SULFATE [Concomitant]
     Indication: ANAEMIA
  9. PROCRIT [Concomitant]
     Indication: PRODUCT USED FOR UNKNOWN INDICATION
     Dosage: 1 ML, QOW
  10. SPIRIVA [Concomitant]
     Indication: PRODUCT USED FOR UNKNOWN INDICATION
  11. METFORMIN [Concomitant]
     Indication: PRODUCT USED FOR UNKNOWN INDICATION
  12. HUMALOG [Concomitant]
     Indication: PRODUCT USED FOR UNKNOWN INDICATION

REACTIONS (25)
  - Back pain [Unknown]
  - Hypoaesthesia [Unknown]
  - Hypersomnia [Unknown]
  - Somnolence [Unknown]
  - Dysgeusia [Unknown]
  - Lacrimation increased [Unknown]
  - Vision blurred [Unknown]
  - Dry mouth [Unknown]
  - Vomiting [Unknown]
  - Weight decreased [Unknown]
  - Chills [Unknown]
  - Decreased appetite [Unknown]
  - Nausea [Unknown]
  - Headache [Unknown]
  - Nausea [Unknown]
  - Decreased appetite [Unknown]
  - Fatigue [Unknown]
  - Anaemia [Recovering/Resolving]
  - Leukopenia [Unknown]
  - Decreased appetite [Unknown]
  - Nausea [Unknown]
  - Vomiting [Unknown]
  - Weight decreased [Unknown]
  - Dizziness [Unknown]
  - White blood cell count decreased [Unknown]
